FAERS Safety Report 7139464-1 (Version None)
Quarter: 2010Q4

REPORT INFORMATION
  Report Type: 
  Country: None (occurrence: None)
  Receive Date: 20101206
  Receipt Date: 20101130
  Transmission Date: 20110411
  Serious: Yes (Death, Life-Threatening)
  Sender: FDA-Public Use
  Company Number: GB-PFIZER INC-2010121999

PATIENT
  Age: 75 Year
  Sex: Male
  Weight: 105 kg

DRUGS (10)
  1. SOMATROPIN RDNA [Suspect]
     Indication: HYPOPITUITARISM
     Dosage: WEEKLY, (7 INJECTIONS PER WEEK)
     Route: 058
     Dates: start: 20070830
  2. IBUPROFEN [Concomitant]
     Indication: ANTIINFLAMMATORY THERAPY
     Dosage: 5 G, 3X/DAY
     Dates: start: 20061124
  3. ENALAPRIL [Concomitant]
     Indication: HYPERTENSION
     Dosage: 5 MG, UNK
     Dates: start: 20060902
  4. GAVISCON [Concomitant]
     Indication: DYSPEPSIA
     Dosage: 10 ML, UNK
     Dates: start: 20060725
  5. ETODOLAC [Concomitant]
     Indication: ANTIINFLAMMATORY THERAPY
     Dosage: 600 MG, DAILY
     Dates: start: 20060725
  6. SILDENAFIL [Concomitant]
     Indication: ERECTILE DYSFUNCTION
     Dosage: 100 MG, AS NEEDED
     Dates: start: 20060721
  7. TAMSULOSIN [Concomitant]
     Indication: URINARY RETENTION
     Dosage: 400 UG, DAILY
     Dates: start: 20060224
  8. RAMIPRIL [Concomitant]
     Indication: HYPERTENSION
     Dosage: 10 MG, UNK
     Dates: start: 20060224
  9. BEZAFIBRATE [Concomitant]
     Indication: HYPERLIPIDAEMIA
     Dosage: 200 MG, DAILY
     Dates: start: 20060224
  10. PROPRANOLOL [Concomitant]
     Indication: HYPERTENSION
     Dosage: UNK
     Dates: start: 20060725

REACTIONS (1)
  - DEATH [None]
